FAERS Safety Report 6785498-6 (Version None)
Quarter: 2010Q2

REPORT INFORMATION
  Report Type: 
  Country: None (occurrence: None)
  Receive Date: 20100623
  Receipt Date: 20100613
  Transmission Date: 20101027
  Serious: Yes (Hospitalization)
  Sender: FDA-Public Use
  Company Number: IL-ELI_LILLY_AND_COMPANY-IL201006004575

PATIENT
  Age: 76 Year
  Sex: Female

DRUGS (4)
  1. EVISTA [Suspect]
     Dosage: UNK UNK, UNKNOWN
     Route: 065
  2. LIPITOR [Concomitant]
     Dosage: UNK UNK, UNKNOWN
     Route: 065
  3. NORVASC [Concomitant]
     Dosage: UNK UNK, UNKNOWN
     Route: 065
  4. CADEX [Concomitant]
     Dosage: UNK UNK, UNKNOWN
     Route: 065

REACTIONS (4)
  - DRUG INTERACTION [None]
  - WOUND [None]
  - WOUND COMPLICATION [None]
  - WOUND INFECTION [None]
